FAERS Safety Report 13776620 (Version 1)
Quarter: 2017Q3

REPORT INFORMATION
  Report Type: Spontaneous
  Country: US (occurrence: US)
  Receive Date: 20170721
  Receipt Date: 20170721
  Transmission Date: 20171127
  Serious: Yes (Death, Hospitalization)
  Sender: FDA-Public Use
  Company Number: None

PATIENT
  Age: 11 Year
  Sex: Male
  Weight: 26.75 kg

DRUGS (6)
  1. CYTARABINE. [Suspect]
     Active Substance: CYTARABINE
     Dates: end: 20170326
  2. DEXAMETHASONE. [Suspect]
     Active Substance: DEXAMETHASONE
     Dates: end: 20170417
  3. METHOTREXATE. [Suspect]
     Active Substance: METHOTREXATE
     Dates: end: 20170424
  4. ONCASPAR [Suspect]
     Active Substance: PEGASPARGASE
     Dosage: TOTAL DOSE ADMINISTERED - 8100 UNIT
     Dates: end: 20170413
  5. DAUNORUBICIN [Suspect]
     Active Substance: DAUNORUBICIN
     Dates: end: 20170417
  6. VINCRISTINE [Suspect]
     Active Substance: VINCRISTINE
     Dates: end: 20170417

REACTIONS (14)
  - Intraventricular haemorrhage [None]
  - Thrombotic cerebral infarction [None]
  - Intracranial pressure increased [None]
  - Brain herniation [None]
  - Incontinence [None]
  - Muscular weakness [None]
  - Brain midline shift [None]
  - Bradycardia [None]
  - Fall [None]
  - Head injury [None]
  - Brain oedema [None]
  - Pupil fixed [None]
  - Headache [None]
  - Cerebral haemorrhage [None]

NARRATIVE: CASE EVENT DATE: 20170428
